FAERS Safety Report 4678113-9 (Version None)
Quarter: 2005Q2

REPORT INFORMATION
  Report Type: 
  Country: None (occurrence: None)
  Receive Date: 20050527
  Receipt Date: 20050519
  Transmission Date: 20051028
  Serious: Yes (Hospitalization)
  Sender: FDA-Public Use
  Company Number: FRP05000386

PATIENT
  Age: 80 Year
  Sex: Female

DRUGS (5)
  1. ACTONEL [Suspect]
     Dosage: ORAL
     Route: 048
     Dates: start: 20040415, end: 20050425
  2. KARDEGIC /FRA/(ACETYLSALICYLATE LYSINE) [Suspect]
     Dosage: 75MG, DAILY, ORAL
     Route: 048
     Dates: end: 20050425
  3. RAMIPRIL [Concomitant]
  4. OMEPRAZOLE [Concomitant]
  5. FUROSEMIDE [Concomitant]

REACTIONS (2)
  - ANAEMIA [None]
  - ILEAL ULCER [None]
